FAERS Safety Report 13201089 (Version 1)
Quarter: 2017Q1

REPORT INFORMATION
  Report Type: Spontaneous
  Country: US (occurrence: US)
  Receive Date: 20170209
  Receipt Date: 20170209
  Transmission Date: 20170428
  Serious: No
  Sender: FDA-Public Use
  Company Number: US-TEVA-720506ACC

PATIENT
  Sex: Male

DRUGS (1)
  1. TESTOSTERONE. [Suspect]
     Active Substance: TESTOSTERONE
     Indication: ANDROGEN DEFICIENCY
     Dosage: 50MG/5G PACKETS

REACTIONS (6)
  - Fatigue [Unknown]
  - Drug ineffective [Unknown]
  - Adverse event [Unknown]
  - Nausea [Unknown]
  - Poor peripheral circulation [Unknown]
  - Headache [Unknown]

NARRATIVE: CASE EVENT DATE: 20161210
